FAERS Safety Report 20361355 (Version 1)
Quarter: 2022Q1

REPORT INFORMATION
  Report Type: Spontaneous
  Country: US (occurrence: None)
  Receive Date: 20220120
  Receipt Date: 20220120
  Transmission Date: 20220423
  Serious: No
  Sender: FDA-Public Use
  Company Number: None

PATIENT
  Age: 27 Year
  Sex: Female
  Weight: 67.5 kg

DRUGS (1)
  1. DEXTROAMPHETAMINE SULFATE [Suspect]
     Active Substance: DEXTROAMPHETAMINE SULFATE
     Indication: Attention deficit hyperactivity disorder
     Dosage: OTHER QUANTITY : 1 CAPSULE(S);?
     Route: 048
     Dates: start: 20220109, end: 20220118

REACTIONS (7)
  - Headache [None]
  - Dry mouth [None]
  - Attention deficit hyperactivity disorder [None]
  - Condition aggravated [None]
  - Disturbance in attention [None]
  - Therapeutic product effect decreased [None]
  - Product substitution issue [None]

NARRATIVE: CASE EVENT DATE: 20220110
